FAERS Safety Report 26061544 (Version 1)
Quarter: 2025Q4

REPORT INFORMATION
  Report Type: Spontaneous
  Country: SA (occurrence: SA)
  Receive Date: 20251118
  Receipt Date: 20251118
  Transmission Date: 20260118
  Serious: Yes (Other)
  Sender: SERVIER
  Company Number: SA-SERVIER-S25016248

PATIENT

DRUGS (4)
  1. ONCASPAR [Suspect]
     Active Substance: PEGASPARGASE
     Indication: T-cell type acute leukaemia
     Dosage: 3750 IU
     Route: 065
     Dates: start: 20250803, end: 20250803
  2. ONCASPAR [Suspect]
     Active Substance: PEGASPARGASE
     Dosage: 3750 IU
     Route: 065
     Dates: start: 20250618, end: 20250618
  3. ONCASPAR [Suspect]
     Active Substance: PEGASPARGASE
     Dosage: 3750 IU
     Route: 065
     Dates: start: 20241121, end: 20241121
  4. ONCASPAR [Suspect]
     Active Substance: PEGASPARGASE
     Dosage: 3750 IU
     Route: 065
     Dates: start: 20241107, end: 20241107

REACTIONS (2)
  - Lip swelling [Unknown]
  - Peripheral swelling [Unknown]

NARRATIVE: CASE EVENT DATE: 20250803
